FAERS Safety Report 10694648 (Version 1)
Quarter: 2015Q1

REPORT INFORMATION
  Report Type: Spontaneous
  Country: US (occurrence: None)
  Receive Date: 20150105
  Receipt Date: 20150105
  Transmission Date: 20150721
  Serious: No
  Sender: FDA-Public Use
  Company Number: None

PATIENT
  Age: 12 Year
  Sex: Female
  Weight: 56.7 kg

DRUGS (1)
  1. PORTIA [Suspect]
     Active Substance: ETHINYL ESTRADIOL\LEVONORGESTREL
     Indication: MENSTRUATION IRREGULAR
     Route: 048
     Dates: start: 20141001, end: 20141112

REACTIONS (6)
  - Pyrexia [None]
  - Faeces pale [None]
  - Headache [None]
  - Decreased appetite [None]
  - Photophobia [None]
  - Abdominal pain upper [None]

NARRATIVE: CASE EVENT DATE: 20141106
